FAERS Safety Report 6110229-2 (Version None)
Quarter: 2009Q1

REPORT INFORMATION
  Report Type: 
  Country: None (occurrence: None)
  Receive Date: 20090310
  Receipt Date: 20090305
  Transmission Date: 20090719
  Serious: Yes (Death, Hospitalization, Other)
  Sender: FDA-Public Use
  Company Number: PHHY2008JP20212

PATIENT
  Sex: Male

DRUGS (6)
  1. EXJADE [Suspect]
     Indication: IRON OVERLOAD
     Dosage: 500 MG/DAY
     Route: 048
     Dates: start: 20080723, end: 20080812
  2. CRAVIT [Suspect]
     Dosage: 2 DF DAILY
     Route: 048
     Dates: start: 20080701, end: 20080812
  3. URSO 250 [Suspect]
     Dosage: 600 MG, UNK
     Route: 048
     Dates: start: 20060906
  4. MECOBALAMIN [Concomitant]
     Dosage: 180 MG, UNK
     Route: 048
  5. ZANTAC [Concomitant]
     Dosage: 150 MG, UNK
     Route: 048
  6. PURSENNID [Concomitant]
     Dosage: 2 DF, UNK
     Route: 048

REACTIONS (5)
  - ALANINE AMINOTRANSFERASE INCREASED [None]
  - ASPARTATE AMINOTRANSFERASE INCREASED [None]
  - CONDITION AGGRAVATED [None]
  - INTERSTITIAL LUNG DISEASE [None]
  - URTICARIA [None]
